FAERS Safety Report 5682908-2 (Version None)
Quarter: 2008Q1

REPORT INFORMATION
  Report Type: 
  Country: None (occurrence: None)
  Receive Date: 20080325
  Receipt Date: 20080316
  Transmission Date: 20080703
  Serious: Yes (Other)
  Sender: FDA-Public Use
  Company Number: 2008006633

PATIENT
  Sex: Male

DRUGS (1)
  1. SUDAFED S.A. [Suspect]
     Dosage: 43 A DAY (30 MG),ORAL
     Route: 048

REACTIONS (2)
  - DEPENDENCE [None]
  - INCORRECT DOSE ADMINISTERED [None]
